FAERS Safety Report 9866296 (Version 1)
Quarter: 2014Q1

REPORT INFORMATION
  Report Type: Spontaneous
  Country: US (occurrence: US)
  Receive Date: 20140203
  Receipt Date: 20140203
  Transmission Date: 20141002
  Serious: No
  Sender: FDA-Public Use
  Company Number: US-009507513-1401USA013115

PATIENT
  Sex: Female

DRUGS (2)
  1. JANUMET [Suspect]
     Indication: TYPE 2 DIABETES MELLITUS
     Dosage: 1 DF, BID
     Route: 048
  2. GLIPIZIDE [Concomitant]
     Dosage: UNK

REACTIONS (2)
  - Hypoaesthesia oral [Recovered/Resolved]
  - Hypoaesthesia oral [Recovered/Resolved]
